FAERS Safety Report 8033904-1 (Version None)
Quarter: 2012Q1

REPORT INFORMATION
  Report Type: 
  Country: None (occurrence: None)
  Receive Date: 20120110
  Receipt Date: 20120102
  Transmission Date: 20120608
  Serious: Yes (Death, Life-Threatening, Hospitalization, Other)
  Sender: FDA-Public Use
  Company Number: TW-ELI_LILLY_AND_COMPANY-TW201201001007

PATIENT
  Age: 36 Year
  Sex: Female

DRUGS (16)
  1. MOCLOBEMIDE [Concomitant]
     Indication: MAJOR DEPRESSION
     Dosage: 150 MG, TID
  2. ESTAZOLAM [Concomitant]
     Dosage: 20 MG, SINGLE
  3. BROMAZEPAM [Concomitant]
     Indication: MAJOR DEPRESSION
     Dosage: 6 MG, EACH EVENING
  4. FLUOXETINE HYDROCHLORIDE [Suspect]
     Indication: MAJOR DEPRESSION
     Dosage: 20 MG, QD
  5. ALPRAZOLAM [Concomitant]
     Dosage: 15 MG, QD
  6. PROPRANOLOL [Concomitant]
     Indication: MAJOR DEPRESSION
     Dosage: 10 MG, TID
  7. PROPRANOLOL [Concomitant]
     Dosage: 300 MG, SINGLE
  8. ESTAZOLAM [Concomitant]
     Indication: MAJOR DEPRESSION
     Dosage: 2 MG, EACH EVENING
  9. LORAZEPAM [Concomitant]
     Dosage: 10 MG, SINGLE
  10. FLUOXETINE HYDROCHLORIDE [Suspect]
     Dosage: 200 MG, SINGLE
  11. MIDAZOLAM [Concomitant]
     Dosage: 75 MG, SINGLE
  12. MOCLOBEMIDE [Concomitant]
     Dosage: 4500 MG, SINGLE
  13. MIDAZOLAM [Concomitant]
     Indication: MAJOR DEPRESSION
     Dosage: 7.5 MG, EACH EVENING
  14. ALPRAZOLAM [Concomitant]
     Indication: MAJOR DEPRESSION
     Dosage: 0.5 MG, TID
  15. LORAZEPAM [Concomitant]
     Indication: MAJOR DEPRESSION
     Dosage: 1 MG, EACH EVENING
  16. BROMAZEPAM [Concomitant]
     Dosage: 60 MG, SINGLE

REACTIONS (32)
  - CIRCULATORY COLLAPSE [None]
  - SEROTONIN SYNDROME [None]
  - RHABDOMYOLYSIS [None]
  - CONVULSION [None]
  - ALANINE AMINOTRANSFERASE INCREASED [None]
  - BLOOD SODIUM INCREASED [None]
  - ECCHYMOSIS [None]
  - ASPARTATE AMINOTRANSFERASE INCREASED [None]
  - RESPIRATORY RATE INCREASED [None]
  - LEUKOCYTOSIS [None]
  - RESPIRATORY FAILURE [None]
  - RENAL FAILURE [None]
  - THROMBOCYTOPENIA [None]
  - DISSEMINATED INTRAVASCULAR COAGULATION [None]
  - COMA [None]
  - INTENTIONAL OVERDOSE [None]
  - GAMMA-GLUTAMYLTRANSFERASE INCREASED [None]
  - BRADYCARDIA [None]
  - GENERAL PHYSICAL HEALTH DETERIORATION [None]
  - BLOOD PH INCREASED [None]
  - MOUTH HAEMORRHAGE [None]
  - COMPLETED SUICIDE [None]
  - VENTRICULAR ARRHYTHMIA [None]
  - SINUS TACHYCARDIA [None]
  - ELECTROCARDIOGRAM QRS COMPLEX PROLONGED [None]
  - ANTIDEPRESSANT DRUG LEVEL DECREASED [None]
  - MUSCLE TWITCHING [None]
  - BLOOD BICARBONATE INCREASED [None]
  - ELECTROCARDIOGRAM QT PROLONGED [None]
  - DRUG INTERACTION [None]
  - MULTIPLE DRUG OVERDOSE INTENTIONAL [None]
  - BLOOD GLUCOSE INCREASED [None]
